FAERS Safety Report 9238823 (Version 3)
Quarter: 2013Q3

REPORT INFORMATION
  Report Type: Spontaneous
  Country: DE (occurrence: DE)
  Receive Date: 20130418
  Receipt Date: 20130715
  Transmission Date: 20140515
  Serious: Yes (Death)
  Sender: FDA-Public Use
  Company Number: DE-ROCHE-1215098

PATIENT
  Age: 63 Year
  Sex: Male

DRUGS (3)
  1. ZELBORAF [Suspect]
     Indication: MALIGNANT MELANOMA
     Route: 048
     Dates: start: 20121115, end: 20121203
  2. ALLOPURINOL [Concomitant]
     Indication: HYPERURICAEMIA
     Route: 048
     Dates: start: 20121115, end: 20121204
  3. ALLOPURINOL [Concomitant]
     Indication: TUMOUR LYSIS SYNDROME

REACTIONS (2)
  - Leukopenia [Fatal]
  - Rash [Not Recovered/Not Resolved]
